FAERS Safety Report 18672754 (Version 1)
Quarter: 2020Q4

REPORT INFORMATION
  Report Type: Spontaneous
  Country: US (occurrence: US)
  Receive Date: 20201228
  Receipt Date: 20201228
  Transmission Date: 20210114
  Serious: No
  Sender: FDA-Public Use
  Company Number: US-009507513-2012USA008146

PATIENT
  Sex: Female

DRUGS (2)
  1. DECADRON [Suspect]
     Active Substance: DEXAMETHASONE
     Indication: HYPERSENSITIVITY
     Dosage: DOUBLE DOSE, ONCE
     Route: 048
  2. PREMARIN [Concomitant]
     Active Substance: ESTROGENS, CONJUGATED
     Dosage: UNK
     Dates: start: 1972

REACTIONS (2)
  - Cardiac disorder [Unknown]
  - Heart rate increased [Unknown]
